FAERS Safety Report 20076652 (Version 2)
Quarter: 2021Q4

REPORT INFORMATION
  Report Type: Spontaneous
  Country: US (occurrence: US)
  Receive Date: 20211116
  Receipt Date: 20211202
  Transmission Date: 20220303
  Serious: Yes (Disabling)
  Sender: FDA-Public Use
  Company Number: US-PFIZER INC-202101507255

PATIENT
  Age: 61 Year
  Sex: Female
  Weight: 60.78 kg

DRUGS (1)
  1. ESTRING [Suspect]
     Active Substance: ESTRADIOL
     Indication: Atrophic vulvovaginitis
     Dosage: 2 MG, EVERY 3 MONTHS (2MG INSERTED VAGINALLY EVERY 90 DAYS)
     Route: 067

REACTIONS (5)
  - Vulvovaginal pain [Unknown]
  - Vulvovaginal erythema [Unknown]
  - Vulvovaginal pruritus [Unknown]
  - Feeling abnormal [Unknown]
  - Device defective [Unknown]

NARRATIVE: CASE EVENT DATE: 20211102
